FAERS Safety Report 6346496-X (Version None)
Quarter: 2009Q3

REPORT INFORMATION
  Report Type: 
  Country: None (occurrence: None)
  Receive Date: 20090901
  Receipt Date: 20090102
  Transmission Date: 20100115
  Serious: Yes (Other)
  Sender: FDA-Public Use
  Company Number: 2008BI032470

PATIENT
  Age: 38 Year
  Sex: Female

DRUGS (3)
  1. TYSABRI [Suspect]
     Indication: MULTIPLE SCLEROSIS
     Dosage: 300 MG;QM;IV
     Route: 042
     Dates: start: 20080724
  2. AVONEX [Concomitant]
  3. CAPAXONE [Concomitant]

REACTIONS (3)
  - HYPERSENSITIVITY [None]
  - INFLUENZA [None]
  - SCRATCH [None]
